FAERS Safety Report 23957989 (Version 1)
Quarter: 2024Q2

REPORT INFORMATION
  Report Type: Spontaneous
  Country: RU (occurrence: RU)
  Receive Date: 20240610
  Receipt Date: 20240610
  Transmission Date: 20240716
  Serious: Yes (Other)
  Sender: FDA-Public Use
  Company Number: RU-AMERICAN REGENT INC-2024002163

PATIENT
  Age: 30 Year
  Sex: Female
  Weight: 60 kg

DRUGS (2)
  1. FERINJECT [Suspect]
     Active Substance: FERRIC CARBOXYMALTOSE
     Indication: Iron deficiency anaemia
     Dosage: UNK (RECEIVED TEST DOSE PRIOR TO THIS FERINJECT INFUSION)
     Route: 042
  2. FERINJECT [Suspect]
     Active Substance: FERRIC CARBOXYMALTOSE
     Dosage: SCHEDULED DOSE: 500 MG DILUTED IN 250 ML IN SODIUM CHLORIDE (NACL MEDIUM), PLANNED DURATION: 90 MIN

REACTIONS (2)
  - Asphyxia [Recovered/Resolved]
  - Maternal exposure during pregnancy [Unknown]
